FAERS Safety Report 7587143-9 (Version None)
Quarter: 2011Q3

REPORT INFORMATION
  Report Type: 
  Country: None (occurrence: None)
  Receive Date: 20110701
  Receipt Date: 20110623
  Transmission Date: 20111222
  Serious: Yes (Other)
  Sender: FDA-Public Use
  Company Number: US-GENENTECH-317883

PATIENT
  Sex: Female
  Weight: 65 kg

DRUGS (10)
  1. COMBIVENT [Concomitant]
     Indication: HYPERSENSITIVITY
  2. ADVAIR DISKUS 100/50 [Concomitant]
     Indication: HYPERSENSITIVITY
  3. CLARINEX (UNITED STATES) [Concomitant]
     Indication: HYPERSENSITIVITY
     Dosage: 5 MG, QD
     Route: 048
     Dates: start: 20030805
  4. ADVAIR DISKUS 100/50 [Concomitant]
     Indication: ASTHMA
     Dosage: UNK
     Dates: start: 20020809
  5. COMBIVENT [Concomitant]
     Indication: ASTHMA
     Dosage: 2 PUFF, Q4H
     Dates: start: 20020809
  6. ALBUTEROL SULFATE AUTOHALER [Concomitant]
     Indication: ASTHMA
     Dosage: UNK
     Dates: start: 20050503
  7. OMALIZUMAB [Suspect]
     Indication: ASTHMA
     Dosage: UNK
     Route: 058
     Dates: start: 20050606, end: 20071011
  8. SINGULAIR [Concomitant]
     Indication: ASTHMA
     Dosage: 10 MG, QHS
     Route: 048
     Dates: start: 20020418
  9. SINGULAIR [Concomitant]
     Indication: HYPERSENSITIVITY
  10. ALBUTEROL SULFATE AUTOHALER [Concomitant]
     Indication: HYPERSENSITIVITY

REACTIONS (1)
  - HYPERSENSITIVITY [None]
